FAERS Safety Report 7683410-9 (Version None)
Quarter: 2011Q3

REPORT INFORMATION
  Report Type: 
  Country: None (occurrence: None)
  Receive Date: 20110815
  Receipt Date: 20110808
  Transmission Date: 20111222
  Serious: Yes (Disabling)
  Sender: FDA-Public Use
  Company Number: DK-BRACCO-000019

PATIENT
  Sex: Male

DRUGS (17)
  1. CONTRAST MEDIA [Suspect]
     Indication: ANEURYSM
     Dates: start: 20030627, end: 20030627
  2. CONTRAST MEDIA [Suspect]
     Indication: RENAL TRANSPLANT
     Dates: start: 20030627, end: 20030627
  3. ATACAND [Concomitant]
  4. CAPOTEN [Concomitant]
  5. PRAZAC [Concomitant]
  6. MAGNYL [Concomitant]
  7. PANTOPRAZOLE [Concomitant]
  8. PLENDIL [Concomitant]
  9. VITAMINS NOS [Concomitant]
  10. METOPROLOL SUCCINATE [Concomitant]
  11. ISRADIPINE [Concomitant]
     Route: 065
  12. SODIUM POLYSTYRENE SULFONATE [Concomitant]
  13. CONTRAST MEDIA [Suspect]
     Indication: NUCLEAR MAGNETIC RESONANCE IMAGING
     Dates: start: 20030627, end: 20030627
  14. RAMIPRIL [Concomitant]
  15. PHOS-EX [Concomitant]
  16. NEORECORMON [Concomitant]
  17. FUROSEMIDE [Concomitant]
     Route: 048

REACTIONS (7)
  - NEPHROGENIC SYSTEMIC FIBROSIS [None]
  - PAIN IN EXTREMITY [None]
  - MOBILITY DECREASED [None]
  - MYALGIA [None]
  - OEDEMA PERIPHERAL [None]
  - JOINT STIFFNESS [None]
  - ARTHRALGIA [None]
